FAERS Safety Report 4342819-1 (Version None)
Quarter: 2004Q2

REPORT INFORMATION
  Report Type: 
  Country: None (occurrence: None)
  Receive Date: 20040416
  Receipt Date: 20040330
  Transmission Date: 20050107
  Serious: Yes (Other)
  Sender: FDA-Public Use
  Company Number: DEU-2004-0000791

PATIENT
  Age: 81 Year
  Sex: Female

DRUGS (2)
  1. OXYCODONE HCL [Suspect]
     Dosage: 20 MG, BID, ORAL
     Route: 048
  2. MARCUMAR [Suspect]
     Dosage: 0.5 TABLET, DAILY, ORAL
     Route: 048

REACTIONS (2)
  - DRUG INTERACTION [None]
  - INTERNATIONAL NORMALISED RATIO DECREASED [None]
